FAERS Safety Report 7180066-9 (Version None)
Quarter: 2010Q4

REPORT INFORMATION
  Report Type: 
  Country: None (occurrence: None)
  Receive Date: 20101221
  Receipt Date: 20101209
  Transmission Date: 20110411
  Serious: Yes (Death, Hospitalization)
  Sender: FDA-Public Use
  Company Number: US-ACTELION-A-US2010-42217

PATIENT

DRUGS (3)
  1. BOSENTAN TABLET 62.5 MG US [Suspect]
     Indication: PULMONARY ARTERIAL HYPERTENSION
     Dosage: 62.5 MG, QD
     Route: 048
     Dates: start: 20101101, end: 20101115
  2. BOSENTAN TABLET 62.5 MG US [Suspect]
     Route: 048
     Dates: start: 20100326, end: 20101031
  3. CALCIUM CHANNEL BLOCKERS [Concomitant]

REACTIONS (4)
  - BLOOD GLUCOSE INCREASED [None]
  - DYSPNOEA [None]
  - HEART RATE ABNORMAL [None]
  - RESPIRATORY FAILURE [None]
